FAERS Safety Report 8427878-9 (Version None)
Quarter: 2012Q2

REPORT INFORMATION
  Report Type: 
  Country: None (occurrence: None)
  Receive Date: 20120611
  Receipt Date: 20120607
  Transmission Date: 20120825
  Serious: Yes (Hospitalization)
  Sender: FDA-Public Use
  Company Number: US-GILEAD-2012-0053489

PATIENT
  Sex: Female

DRUGS (1)
  1. LETAIRIS [Suspect]
     Indication: PULMONARY HYPERTENSION
     Dosage: 10 MG, UNK
     Route: 048
     Dates: start: 20091002

REACTIONS (5)
  - MEMORY IMPAIRMENT [None]
  - SPINAL FRACTURE [None]
  - FALL [None]
  - COMPRESSION FRACTURE [None]
  - SYNCOPE [None]
